FAERS Safety Report 20492004 (Version 2)
Quarter: 2022Q1

REPORT INFORMATION
  Report Type: Spontaneous
  Country: US (occurrence: US)
  Receive Date: 20220218
  Receipt Date: 20220302
  Transmission Date: 20220423
  Serious: Yes (Other)
  Sender: FDA-Public Use
  Company Number: US-009507513-2202USA003134

PATIENT
  Sex: Female

DRUGS (5)
  1. STEGLATRO [Suspect]
     Active Substance: ERTUGLIFLOZIN PIDOLATE
     Indication: Diabetes mellitus
     Dosage: 15 MG, DAILY
     Route: 048
     Dates: start: 2012
  2. STEGLATRO [Suspect]
     Active Substance: ERTUGLIFLOZIN PIDOLATE
     Dosage: UNK
     Route: 048
     Dates: start: 20220209
  3. METFORMIN [Suspect]
     Active Substance: METFORMIN HYDROCHLORIDE
     Dosage: UNK
  4. LOSARTAN [Concomitant]
     Active Substance: LOSARTAN
  5. NEBIVOLOL [Concomitant]
     Active Substance: NEBIVOLOL

REACTIONS (6)
  - Diabetic retinopathy [Not Recovered/Not Resolved]
  - Gastrectomy [Not Recovered/Not Resolved]
  - Blood glucose increased [Not Recovered/Not Resolved]
  - Weight increased [Not Recovered/Not Resolved]
  - Ill-defined disorder [Not Recovered/Not Resolved]
  - Illness [Not Recovered/Not Resolved]

NARRATIVE: CASE EVENT DATE: 20190101
